FAERS Safety Report 5269938-X (Version None)
Quarter: 2007Q1

REPORT INFORMATION
  Report Type: 
  Country: None (occurrence: None)
  Receive Date: 20070320
  Receipt Date: 20070309
  Transmission Date: 20070707
  Serious: Yes (Hospitalization)
  Sender: FDA-Public Use
  Company Number: US-AVENTIS-200711830US

PATIENT
  Age: 14 Year
  Sex: Female

DRUGS (2)
  1. LANTUS [Suspect]
     Route: 051
  2. ALBUTEROL [Suspect]
     Dosage: DOSE: UNK

REACTIONS (4)
  - DRUG INTERACTION [None]
  - DYSPNOEA [None]
  - HEART RATE IRREGULAR [None]
  - MALAISE [None]
